FAERS Safety Report 8155693-2 (Version None)
Quarter: 2012Q1

REPORT INFORMATION
  Report Type: 
  Country: None (occurrence: None)
  Receive Date: 20120222
  Receipt Date: 20120217
  Transmission Date: 20120608
  Serious: No
  Sender: FDA-Public Use
  Company Number: US-PFIZER INC-2012043762

PATIENT
  Sex: Female
  Weight: 82.54 kg

DRUGS (2)
  1. HYDROXYZINE [Concomitant]
     Indication: ANXIETY
     Dosage: 25 MG, AS NEEDED
  2. PRISTIQ [Suspect]
     Indication: DEPRESSION
     Dosage: 50 MG, DAILY
     Route: 048
     Dates: start: 20110801

REACTIONS (1)
  - NAUSEA [None]
